FAERS Safety Report 8259517-4 (Version None)
Quarter: 2012Q2

REPORT INFORMATION
  Report Type: 
  Country: None (occurrence: None)
  Receive Date: 20120404
  Receipt Date: 20120327
  Transmission Date: 20120825
  Serious: Yes (Other)
  Sender: FDA-Public Use
  Company Number: US-GILEAD-2012-0052225

PATIENT
  Age: 47 Year
  Sex: Female

DRUGS (7)
  1. RANEXA [Suspect]
     Indication: PRINZMETAL ANGINA
     Dosage: 625 MG, QD
     Route: 048
     Dates: start: 20110310
  2. RANEXA [Suspect]
     Dosage: 625 MG, QD
     Route: 048
     Dates: start: 20100112, end: 20101229
  3. RANEXA [Suspect]
     Dosage: 500 MG, QD
     Route: 048
     Dates: start: 20091209, end: 20120110
  4. ASPIRIN [Concomitant]
  5. MULTIVITAMIN                       /00097801/ [Concomitant]
  6. VITAMIN D [Concomitant]
  7. RANEXA [Suspect]
     Dosage: 750 MG, QD
     Route: 048
     Dates: start: 20101229, end: 20110310

REACTIONS (1)
  - HEPATIC ENZYME INCREASED [None]
